FAERS Safety Report 6631493-7 (Version None)
Quarter: 2010Q1

REPORT INFORMATION
  Report Type: 
  Country: None (occurrence: None)
  Receive Date: 20100312
  Receipt Date: 20100301
  Transmission Date: 20100710
  Serious: Yes (Hospitalization, Other)
  Sender: FDA-Public Use
  Company Number: PHHY2010BR12721

PATIENT
  Age: 34 Year
  Sex: Male
  Weight: 106 kg

DRUGS (3)
  1. LEPONEX [Suspect]
     Indication: SCHIZOPHRENIA
     Dosage: 1 DF, QHS
     Route: 048
  2. LEPONEX [Suspect]
     Indication: DEPRESSION
     Dosage: 5.5 DF, QHS
     Route: 048
  3. GEODON [Concomitant]
     Dosage: 2 DF, QHS

REACTIONS (7)
  - BACK PAIN [None]
  - ERECTILE DYSFUNCTION [None]
  - FISTULA [None]
  - PENILE PAIN [None]
  - PRIAPISM [None]
  - SCROTAL PAIN [None]
  - THERAPEUTIC PROCEDURE [None]
